FAERS Safety Report 8317274-7 (Version None)
Quarter: 2012Q2

REPORT INFORMATION
  Report Type: 
  Country: None (occurrence: None)
  Receive Date: 20120425
  Receipt Date: 20120413
  Transmission Date: 20120825
  Serious: Yes (Hospitalization)
  Sender: FDA-Public Use
  Company Number: DSA_56172_2012

PATIENT
  Age: 15 Year
  Sex: Male

DRUGS (9)
  1. VORICONAZOLE [Concomitant]
  2. ACYCLOVIR [Suspect]
     Indication: ENCEPHALITIS HERPES
     Dosage: (30 MG/KG, DAILY INTRAVENOUS (NOT OTHERWISE SPECIFIED)
     Route: 042
  3. CIPROFLOXACIN [Concomitant]
  4. LEVETIRACETAM [Concomitant]
  5. CLONAZEPAM [Concomitant]
  6. VANCOMYCIN [Concomitant]
  7. PHENOBARBITAL TAB [Concomitant]
  8. MEROPENEM [Concomitant]
  9. HALOPERIDOL [Concomitant]

REACTIONS (1)
  - DERMATITIS BULLOUS [None]
